FAERS Safety Report 24606840 (Version 2)
Quarter: 2024Q4

REPORT INFORMATION
  Report Type: Spontaneous
  Country: US (occurrence: US)
  Receive Date: 20241112
  Receipt Date: 20241123
  Transmission Date: 20250115
  Serious: Yes (Hospitalization, Other)
  Sender: ACCORD
  Company Number: US-Accord-454615

PATIENT
  Age: 59 Year
  Sex: Female

DRUGS (9)
  1. CLOZAPINE [Suspect]
     Active Substance: CLOZAPINE
     Indication: Schizoaffective disorder bipolar type
  2. QUETIAPINE [Suspect]
     Active Substance: QUETIAPINE
     Indication: Parkinson^s disease
  3. FAMOTIDINE [Concomitant]
     Active Substance: FAMOTIDINE
  4. ASPIRIN [Concomitant]
     Active Substance: ASPIRIN
  5. LEVOTHYROXINE [Concomitant]
     Active Substance: LEVOTHYROXINE
  6. SENNA [Concomitant]
     Active Substance: SENNA LEAF\SENNOSIDES\SENNOSIDES A AND B
  7. LITHIUM [Concomitant]
     Active Substance: LITHIUM
  8. CLOZAPINE [Suspect]
     Active Substance: CLOZAPINE
     Indication: Schizoaffective disorder bipolar type
  9. CLOZAPINE [Suspect]
     Active Substance: CLOZAPINE
     Indication: Schizoaffective disorder bipolar type

REACTIONS (2)
  - Hypersensitivity myocarditis [Recovered/Resolved]
  - Autoimmune myocarditis [Recovered/Resolved]
